FAERS Safety Report 9433708 (Version 1)
Quarter: 2013Q3

REPORT INFORMATION
  Report Type: Spontaneous
  Country: US (occurrence: US)
  Receive Date: 20130731
  Receipt Date: 20130731
  Transmission Date: 20140515
  Serious: Yes (Congenital Anomaly)
  Sender: FDA-Public Use
  Company Number: US-UCBSA-092879

PATIENT
  Sex: Male

DRUGS (4)
  1. VIMPAT [Suspect]
     Indication: COMPLEX PARTIAL SEIZURES
     Dosage: 200 MG Q AM, 300 MG Q PM
     Route: 064
     Dates: end: 2013
  2. VIMPAT [Suspect]
     Indication: EPILEPSY
     Dosage: 200 MG Q AM, 300 MG Q PM
     Route: 064
     Dates: end: 2013
  3. PRENATAL VITAMINS [Concomitant]
     Route: 064
     Dates: end: 2013
  4. FOLIC ACID [Concomitant]
     Route: 064
     Dates: end: 2013

REACTIONS (2)
  - Hypospadias [Not Recovered/Not Resolved]
  - Foetal exposure during pregnancy [Recovered/Resolved]
